FAERS Safety Report 5485536-7 (Version None)
Quarter: 2007Q4

REPORT INFORMATION
  Report Type: 
  Country: None (occurrence: None)
  Receive Date: 20071011
  Receipt Date: 20071011
  Transmission Date: 20080405
  Serious: Yes (Hospitalization)
  Sender: FDA-Public Use
  Company Number: None

PATIENT
  Age: 64 Year
  Sex: Male
  Weight: 121.564 kg

DRUGS (12)
  1. LYRICA [Suspect]
     Dosage: 50MG 1 PO TID
     Route: 048
     Dates: start: 20070322, end: 20070726
  2. LYRICA [Suspect]
     Dosage: 50MG 1 PO TID
     Route: 048
     Dates: end: 20070731
  3. COLCHICINE 0.6MG 1 BID PRN PO [Suspect]
     Dosage: 0.06 MG 1 BID PRN PO
     Route: 048
     Dates: start: 20070315, end: 20070331
  4. ALDACTONE [Concomitant]
  5. BRETHINE [Concomitant]
  6. THEO-DUR [Concomitant]
  7. GLYBURIDE [Concomitant]
  8. K-DUR 10 [Concomitant]
  9. ALTACE [Concomitant]
  10. ZAROXOLYN [Concomitant]
  11. NOVOLOG [Concomitant]
  12. ALBUTEROL [Concomitant]

REACTIONS (8)
  - ARTHRALGIA [None]
  - ASTHENIA [None]
  - BLOOD CREATINE PHOSPHOKINASE INCREASED [None]
  - BLOOD URIC ACID INCREASED [None]
  - MYALGIA [None]
  - MYOGLOBIN BLOOD PRESENT [None]
  - RED BLOOD CELL SEDIMENTATION RATE INCREASED [None]
  - SWELLING [None]
